FAERS Safety Report 13738836 (Version 1)
Quarter: 2017Q3

REPORT INFORMATION
  Report Type: Spontaneous
  Country: FR (occurrence: FR)
  Receive Date: 20170710
  Receipt Date: 20170710
  Transmission Date: 20171127
  Serious: Yes (Hospitalization)
  Sender: FDA-Public Use
  Company Number: FR-SA-2017SA114715

PATIENT
  Age: 59 Year
  Sex: Male
  Weight: 66 kg

DRUGS (23)
  1. LASILIX [Concomitant]
     Active Substance: FUROSEMIDE
     Indication: DIURETIC THERAPY
     Dosage: AT NOON
     Route: 048
     Dates: start: 20161002, end: 20170319
  2. LASILIX [Concomitant]
     Active Substance: FUROSEMIDE
     Indication: RENAL FAILURE
     Dosage: AT NOON
     Route: 048
     Dates: start: 20161002, end: 20170319
  3. LASILIX [Concomitant]
     Active Substance: FUROSEMIDE
     Indication: DIURETIC THERAPY
     Route: 048
     Dates: start: 20170319
  4. LASILIX [Concomitant]
     Active Substance: FUROSEMIDE
     Indication: RENAL FAILURE
     Route: 048
     Dates: start: 20170319
  5. AMOXICILLIN. [Concomitant]
     Active Substance: AMOXICILLIN
     Indication: ENDOCARDITIS ENTEROCOCCAL
     Route: 048
     Dates: start: 20170313, end: 20170424
  6. UVEDOSE [Concomitant]
     Active Substance: CHOLECALCIFEROL
     Indication: VITAMIN D DEFICIENCY
     Dosage: DOSE: 1000 UI (CHOLECALCIFEROL CONCENTRATE), ONCE VIAL
     Route: 048
     Dates: start: 20170407
  7. MOVICOL [Concomitant]
     Active Substance: POLYETHYLENE GLYCOL 3350\POTASSIUM CHLORIDE\SODIUM BICARBONATE\SODIUM CHLORIDE
     Indication: CONSTIPATION
     Route: 048
     Dates: start: 20170407
  8. ALDACTONE [Concomitant]
     Active Substance: SPIRONOLACTONE
     Route: 065
     Dates: start: 20170319
  9. COLCHICINE. [Concomitant]
     Active Substance: COLCHICINE
     Indication: GOUT
     Route: 048
     Dates: start: 20170407, end: 20170410
  10. OROZAMUDOL [Concomitant]
     Active Substance: TRAMADOL
     Indication: ANALGESIC THERAPY
     Route: 048
     Dates: start: 20170407
  11. KARDEGIC [Suspect]
     Active Substance: ASPIRIN LYSINE
     Route: 048
     Dates: start: 20170302
  12. DIPROSONE [Concomitant]
     Active Substance: BETAMETHASONE DIPROPIONATE
     Dosage: STRENGTH: 0.05%
     Route: 003
     Dates: start: 20170407
  13. TAZOBACTAM/PIPERACILLIN [Concomitant]
     Route: 065
     Dates: start: 20170313, end: 20170424
  14. LANZOR [Concomitant]
     Active Substance: LANSOPRAZOLE
     Indication: GASTRIC DISORDER
     Dosage: IN THE EVENING
     Route: 048
     Dates: start: 20161002
  15. LANZOR [Concomitant]
     Active Substance: LANSOPRAZOLE
     Indication: ACID BASE BALANCE ABNORMAL
     Dosage: IN THE EVENING
     Route: 048
     Dates: start: 20170407
  16. LANZOR [Concomitant]
     Active Substance: LANSOPRAZOLE
     Indication: GASTRIC DISORDER
     Dosage: IN THE EVENING
     Route: 048
     Dates: start: 20170407
  17. MIRCERA [Concomitant]
     Active Substance: METHOXY POLYETHYLENE GLYCOL-EPOETIN BETA
     Indication: IRON DEFICIENCY ANAEMIA
     Route: 042
     Dates: start: 20170407
  18. LEVOTHYROX [Concomitant]
     Active Substance: LEVOTHYROXINE
     Indication: HYPOTHYROIDISM
     Route: 048
     Dates: start: 20170407
  19. PLAVIX [Suspect]
     Active Substance: CLOPIDOGREL BISULFATE
     Route: 048
     Dates: start: 20170302, end: 20170408
  20. CORDARONE [Concomitant]
     Active Substance: AMIODARONE HYDROCHLORIDE
     Indication: CARDIAC DISORDER
     Dosage: IN THE MORNING
     Route: 048
     Dates: start: 20161002
  21. TAHOR [Concomitant]
     Active Substance: ATORVASTATIN CALCIUM
     Indication: HYPERLIPIDAEMIA
     Dosage: IN THE EVENING
     Route: 048
     Dates: start: 20161002
  22. LANZOR [Concomitant]
     Active Substance: LANSOPRAZOLE
     Indication: ACID BASE BALANCE ABNORMAL
     Dosage: IN THE EVENING
     Route: 048
     Dates: start: 20161002
  23. DIFFU K [Concomitant]
     Active Substance: POTASSIUM CHLORIDE
     Route: 065

REACTIONS (6)
  - Pyrexia [Unknown]
  - Pelvic fluid collection [Unknown]
  - Intra-abdominal haemorrhage [Recovered/Resolved]
  - Inflammation [Unknown]
  - Acute kidney injury [Unknown]
  - Abdominal pain [Unknown]

NARRATIVE: CASE EVENT DATE: 20170408
